FAERS Safety Report 9275087 (Version 3)
Quarter: 2013Q2

REPORT INFORMATION
  Report Type: Report from Study
  Country: IN (occurrence: IN)
  Receive Date: 20130507
  Receipt Date: 20130522
  Transmission Date: 20140414
  Serious: Yes (Hospitalization)
  Sender: FDA-Public Use
  Company Number: PHHY2013IN044005

PATIENT
  Age: 62 Year
  Sex: Female

DRUGS (2)
  1. ACLASTA [Suspect]
     Indication: BONE DISORDER
     Dosage: 5 MG PER YEAR
     Route: 042
     Dates: start: 2012
  2. CALCIUM [Concomitant]
     Indication: BONE DISORDER
     Dosage: UNK

REACTIONS (1)
  - Lower limb fracture [Recovering/Resolving]
